FAERS Safety Report 15780963 (Version 1)
Quarter: 2018Q4

REPORT INFORMATION
  Report Type: Spontaneous
  Country: US (occurrence: US)
  Receive Date: 20181226
  Receipt Date: 20181226
  Transmission Date: 20190205
  Serious: No
  Sender: FDA-Public Use
  Company Number: None

PATIENT

DRUGS (2)
  1. OMPERAZOLE [Suspect]
     Active Substance: OMEPRAZOLE
  2. CARBIDOPA. [Suspect]
     Active Substance: CARBIDOPA

REACTIONS (4)
  - Product dispensing error [None]
  - Nausea [None]
  - Vomiting [None]
  - Wrong product administered [None]
